FAERS Safety Report 9297148 (Version 1)
Quarter: 2013Q2

REPORT INFORMATION
  Report Type: Spontaneous
  Country: CA (occurrence: CA)
  Receive Date: 20130520
  Receipt Date: 20130520
  Transmission Date: 20140414
  Serious: Yes (Hospitalization)
  Sender: FDA-Public Use
  Company Number: CA-RANBAXY-2013US-69189

PATIENT
  Age: 80 Year
  Sex: Female

DRUGS (7)
  1. CODEINE [Suspect]
     Indication: BACK PAIN
     Dosage: UNK
     Route: 065
  2. MORPHINE [Suspect]
     Indication: BACK PAIN
     Dosage: 5 MG, PRN
     Route: 065
  3. HYDROMORPHONE [Suspect]
     Indication: BACK PAIN
     Dosage: UNK
     Route: 065
  4. HYDROMORPHONE [Suspect]
     Indication: BREAKTHROUGH PAIN
  5. HYDROMORPHONE [Suspect]
     Indication: BACK PAIN
     Dosage: UNK
     Route: 065
  6. HYDROMORPHONE [Suspect]
     Indication: BREAKTHROUGH PAIN
  7. PARACETAMOL [Concomitant]
     Indication: BACK PAIN
     Dosage: UNK
     Route: 065

REACTIONS (2)
  - Pain [Unknown]
  - Large intestinal obstruction [Recovering/Resolving]
